FAERS Safety Report 18273552 (Version 3)
Quarter: 2020Q4

REPORT INFORMATION
  Report Type: Report from Study
  Country: GB (occurrence: GB)
  Receive Date: 20200916
  Receipt Date: 20201028
  Transmission Date: 20210113
  Serious: Yes (Hospitalization)
  Sender: FDA-Public Use
  Company Number: GB-BRISTOL-MYERS SQUIBB COMPANY-BMS-2020-074196

PATIENT
  Age: 67 Year
  Sex: Male
  Weight: 71.4 kg

DRUGS (5)
  1. EDOXABAN [Concomitant]
     Active Substance: EDOXABAN TOSYLATE
     Indication: DEEP VEIN THROMBOSIS
     Dosage: 60 MILLIGRAM, QD
     Route: 048
     Dates: start: 20180928
  2. HYDROCORTISONE. [Concomitant]
     Active Substance: HYDROCORTISONE
     Indication: ADRENAL INSUFFICIENCY
     Dosage: 10 MILLIGRAM (TDS DIVIDED DOSES)
     Route: 048
     Dates: start: 20200430
  3. NIVOLUMAB [Suspect]
     Active Substance: NIVOLUMAB
     Indication: PROSTATE CANCER
     Dosage: 480 MILLIGRAM, Q4WK
     Route: 065
     Dates: start: 20200206
  4. LANSOPRAZOLE. [Concomitant]
     Active Substance: LANSOPRAZOLE
     Indication: PROPHYLAXIS
     Dosage: 30 MILLIGRAM, QD
     Route: 048
     Dates: start: 20200225
  5. HYDROCORTISONE. [Concomitant]
     Active Substance: HYDROCORTISONE
     Dosage: 5 MILLIGRAM (TDS DIVIDED DOSES)
     Route: 048

REACTIONS (3)
  - Colitis [Recovered/Resolved with Sequelae]
  - Proctalgia [Not Recovered/Not Resolved]
  - Non-cardiac chest pain [Recovered/Resolved]

NARRATIVE: CASE EVENT DATE: 20200822
